FAERS Safety Report 7767137-0 (Version None)
Quarter: 2011Q3

REPORT INFORMATION
  Report Type: 
  Country: None (occurrence: None)
  Receive Date: 20110922
  Receipt Date: 20100831
  Transmission Date: 20111222
  Serious: No
  Sender: FDA-Public Use
  Company Number: US-ASTRAZENECA-2010SE41024

PATIENT
  Age: 46 Year
  Sex: Female
  Weight: 68 kg

DRUGS (3)
  1. ATIVAN [Concomitant]
  2. SEROQUEL XR [Suspect]
     Indication: DEPRESSION
     Route: 048
     Dates: start: 20100801, end: 20100801
  3. SEROQUEL XR [Suspect]
     Indication: BIPOLAR DISORDER
     Route: 048
     Dates: start: 20100801, end: 20100801

REACTIONS (5)
  - WEIGHT INCREASED [None]
  - MEMORY IMPAIRMENT [None]
  - SCIATICA [None]
  - ABDOMINAL DISTENSION [None]
  - SOMNOLENCE [None]
